FAERS Safety Report 6698971-6 (Version None)
Quarter: 2010Q2

REPORT INFORMATION
  Report Type: 
  Country: None (occurrence: None)
  Receive Date: 20100427
  Receipt Date: 20100419
  Transmission Date: 20101027
  Serious: Yes (Disabling)
  Sender: FDA-Public Use
  Company Number: B0648161A

PATIENT
  Age: 55 Year
  Sex: Female

DRUGS (1)
  1. ROPINIROLE [Suspect]

REACTIONS (3)
  - GAMBLING [None]
  - IMPULSIVE BEHAVIOUR [None]
  - SUICIDE ATTEMPT [None]
